FAERS Safety Report 8802978 (Version 1)
Quarter: 2012Q4

REPORT INFORMATION
  Report Type: 
  Country: AR (occurrence: AR)
  Receive Date: 20120924
  Receipt Date: 20120924
  Transmission Date: 20130627
  Serious: Yes (Hospitalization)
  Sender: FDA-Public Use
  Company Number: PHHY2012AR081747

PATIENT
  Age: 22 Year
  Sex: Male

DRUGS (2)
  1. SANDIMMUN NEORAL / OL [Suspect]
     Indication: RENAL TRANSPLANT
     Dosage: 100 mg, daily
     Dates: start: 2004
  2. MYFORTIC [Concomitant]
     Dosage: 360 mg, daily

REACTIONS (5)
  - Pallor [Recovered/Resolved]
  - Pyrexia [Recovered/Resolved]
  - Diarrhoea [Recovered/Resolved]
  - Vomiting [Recovered/Resolved]
  - Asthenia [Recovered/Resolved]
